FAERS Safety Report 10908427 (Version 1)
Quarter: 2015Q1

REPORT INFORMATION
  Report Type: Spontaneous
  Country: US (occurrence: None)
  Receive Date: 20150309
  Receipt Date: 20150309
  Transmission Date: 20150721
  Serious: Yes (Death)
  Sender: FDA-Public Use
  Company Number: None

PATIENT
  Age: 70 Year
  Sex: Male

DRUGS (14)
  1. CEFTRIAXONE. [Suspect]
     Active Substance: CEFTRIAXONE
     Indication: TREATMENT FAILURE
     Dosage: (1G VIAL X 2)
     Route: 042
     Dates: start: 20150305
  2. SPIRONOLACTONE. [Concomitant]
     Active Substance: SPIRONOLACTONE
  3. TIOTROPIUM [Concomitant]
     Active Substance: TIOTROPIUM
  4. LISINOPRIL. [Concomitant]
     Active Substance: LISINOPRIL
  5. DUONEB [Concomitant]
     Active Substance: ALBUTEROL SULFATE\IPRATROPIUM BROMIDE
  6. COMBIVENT [Concomitant]
     Active Substance: ALBUTEROL SULFATE\IPRATROPIUM BROMIDE
  7. CEFTRIAXONE. [Suspect]
     Active Substance: CEFTRIAXONE
     Indication: CELLULITIS
     Dosage: (1G VIAL X 2)
     Route: 042
     Dates: start: 20150305
  8. SYMBICORT [Concomitant]
     Active Substance: BUDESONIDE\FORMOTEROL FUMARATE DIHYDRATE
  9. CARVEDILOL. [Concomitant]
     Active Substance: CARVEDILOL
  10. WARFARIN [Concomitant]
     Active Substance: WARFARIN
  11. FUROSEMIDE. [Concomitant]
     Active Substance: FUROSEMIDE
  12. DIGOXIN. [Concomitant]
     Active Substance: DIGOXIN
  13. KCL [Concomitant]
     Active Substance: POTASSIUM CHLORIDE
  14. NORCO [Concomitant]
     Active Substance: ACETAMINOPHEN\HYDROCODONE BITARTRATE

REACTIONS (5)
  - Rash erythematous [None]
  - Dyspnoea [None]
  - Rash generalised [None]
  - Cardio-respiratory arrest [None]
  - Pruritus [None]

NARRATIVE: CASE EVENT DATE: 20150305
